FAERS Safety Report 6811492-2 (Version None)
Quarter: 2010Q2

REPORT INFORMATION
  Report Type: 
  Country: None (occurrence: None)
  Receive Date: 20100629
  Receipt Date: 20100629
  Transmission Date: 20101027
  Serious: Yes (Hospitalization)
  Sender: FDA-Public Use
  Company Number: None

PATIENT
  Age: 79 Year
  Sex: Male
  Weight: 70 kg

DRUGS (1)
  1. GENTAMICIN [Suspect]
     Indication: ENDOCARDITIS
     Dosage: BID IV DRIP
     Route: 041
     Dates: start: 20100316, end: 20100413

REACTIONS (10)
  - ABASIA [None]
  - ASTHENIA [None]
  - ATAXIA [None]
  - BALANCE DISORDER [None]
  - DEAFNESS BILATERAL [None]
  - DIZZINESS [None]
  - DYSSTASIA [None]
  - NEUROTOXICITY [None]
  - OTOTOXICITY [None]
  - WALKING AID USER [None]
